FAERS Safety Report 23652462 (Version 2)
Quarter: 2024Q2

REPORT INFORMATION
  Report Type: Spontaneous
  Country: FR (occurrence: FR)
  Receive Date: 20240320
  Receipt Date: 20240401
  Transmission Date: 20240716
  Serious: Yes (Other)
  Sender: FDA-Public Use
  Company Number: FR-TEVA-VS-3168630

PATIENT
  Age: 19 Year
  Sex: Male

DRUGS (3)
  1. VERAPAMIL [Suspect]
     Active Substance: VERAPAMIL HYDROCHLORIDE
     Indication: Cluster headache
     Dosage: FOR 18 MONTHS
     Route: 065
  2. SUMATRIPTAN [Concomitant]
     Active Substance: SUMATRIPTAN
     Indication: Cluster headache
  3. KETOPROFEN [Concomitant]
     Active Substance: KETOPROFEN
     Indication: Cluster headache

REACTIONS (3)
  - Atrioventricular block [Recovered/Resolved]
  - Sinus bradycardia [Recovered/Resolved]
  - Off label use [Unknown]
